FAERS Safety Report 10472372 (Version 1)
Quarter: 2014Q3

REPORT INFORMATION
  Report Type: Spontaneous
  Country: PT (occurrence: PT)
  Receive Date: 20140924
  Receipt Date: 20140924
  Transmission Date: 20150326
  Serious: Yes (Hospitalization, Other)
  Sender: FDA-Public Use
  Company Number: PHHY2014PT123339

PATIENT
  Age: 66 Year
  Sex: Male

DRUGS (10)
  1. BUDESONIDE. [Suspect]
     Active Substance: BUDESONIDE
     Indication: ASTHMA
     Route: 045
  2. EBASTINE [Suspect]
     Active Substance: EBASTINE
     Indication: ASTHMA
  3. CLEMASTINE [Concomitant]
     Active Substance: CLEMASTINE
  4. SALBUTAMOL [Concomitant]
     Active Substance: ALBUTEROL
  5. TRIAMCINOLONE [Concomitant]
     Active Substance: TRIAMCINOLONE
     Route: 065
  6. CORTICOSTEROIDS [Concomitant]
     Active Substance: CORTICOSTEROID NOS
     Route: 048
  7. HYDROCORTISONE. [Suspect]
     Active Substance: HYDROCORTISONE
     Route: 042
  8. BUDESONIDE, FORMOTEROL FUMARATE [Suspect]
     Active Substance: BUDESONIDE\FORMOTEROL FUMARATE DIHYDRATE
     Indication: ASTHMA
  9. ADRENALIN [Concomitant]
     Active Substance: EPINEPHRINE
     Route: 030
  10. MONTELUKAST [Concomitant]
     Active Substance: MONTELUKAST SODIUM
     Dosage: 10 MG, UNK

REACTIONS (9)
  - Rash erythematous [Unknown]
  - Conjunctivitis [Unknown]
  - Anaphylactic reaction [Unknown]
  - Dyspnoea [Unknown]
  - Respiratory tract infection [Unknown]
  - Wheezing [Unknown]
  - Rash generalised [Unknown]
  - Urinary incontinence [Unknown]
  - Asthma [Unknown]
